FAERS Safety Report 8795658 (Version 2)
Quarter: 2015Q2

REPORT INFORMATION
  Report Type: Report from Study
  Country: US (occurrence: US)
  Receive Date: 20120917
  Receipt Date: 20150407
  Transmission Date: 20150821
  Serious: Yes (Death, Other)
  Sender: FDA-Public Use
  Company Number: US-ROCHE-1128769

PATIENT
  Age: 61 Year
  Sex: Female

DRUGS (9)
  1. GEMCITABINE [Concomitant]
     Active Substance: GEMCITABINE\GEMCITABINE HYDROCHLORIDE
     Route: 042
  2. AVASTIN [Suspect]
     Active Substance: BEVACIZUMAB
     Indication: NEOPLASM MALIGNANT
     Route: 042
     Dates: start: 20100319
  3. AVASTIN [Suspect]
     Active Substance: BEVACIZUMAB
     Indication: METASTASES TO LIVER
  4. ALOXI [Concomitant]
     Active Substance: PALONOSETRON HYDROCHLORIDE
     Route: 065
  5. EMEND [Concomitant]
     Active Substance: APREPITANT
     Route: 048
  6. DECADRON [Concomitant]
     Active Substance: DEXAMETHASONE
     Route: 042
  7. TARCEVA [Suspect]
     Active Substance: ERLOTINIB HYDROCHLORIDE
     Indication: PRODUCT USED FOR UNKNOWN INDICATION
     Route: 048
  8. AVASTIN [Suspect]
     Active Substance: BEVACIZUMAB
     Indication: MALIGNANT ASCITES
  9. FOSAPREPITANT [Concomitant]
     Active Substance: FOSAPREPITANT
     Route: 042

REACTIONS (13)
  - Ascites [Unknown]
  - Hyponatraemia [Unknown]
  - Vomiting [Unknown]
  - Pain [Unknown]
  - Decreased appetite [Unknown]
  - Cachexia [Unknown]
  - Disease progression [Unknown]
  - Death [Fatal]
  - Muscle atrophy [Unknown]
  - Fatigue [Unknown]
  - Oedema [Unknown]
  - Cytopenia [Unknown]
  - Nausea [Unknown]

NARRATIVE: CASE EVENT DATE: 20100410
